FAERS Safety Report 4387020-0 (Version None)
Quarter: 2004Q2

REPORT INFORMATION
  Report Type: 
  Country: None (occurrence: None)
  Receive Date: 20040630
  Receipt Date: 20040205
  Transmission Date: 20050107
  Serious: No
  Sender: FDA-Public Use
  Company Number: US-GLAXOSMITHKLINE-A0496768A

PATIENT
  Age: 45 Year
  Sex: Female

DRUGS (10)
  1. ADVAIR HFA [Suspect]
     Indication: ASTHMA
     Dosage: 1PUFF TWICE PER DAY
     Route: 055
     Dates: start: 20020101, end: 20030101
  2. FLOVENT [Suspect]
     Dosage: 220MCG TWICE PER DAY
     Route: 055
  3. SINGULAIR [Concomitant]
     Route: 048
  4. ACCUPRIL [Concomitant]
     Route: 065
  5. PRAVACHOL [Concomitant]
  6. CELEBREX [Concomitant]
  7. ALLEGRA [Concomitant]
  8. BECONASE AQ [Concomitant]
     Route: 045
  9. SEREVENT [Concomitant]
     Indication: ASTHMA
     Route: 055
  10. ALBUTEROL [Concomitant]

REACTIONS (2)
  - CATARACT SUBCAPSULAR [None]
  - ORAL CANDIDIASIS [None]
